FAERS Safety Report 11574697 (Version 1)
Quarter: 2015Q3

REPORT INFORMATION
  Report Type: Spontaneous
  Country: US (occurrence: US)
  Receive Date: 20150930
  Receipt Date: 20150930
  Transmission Date: 20151125
  Serious: No
  Sender: FDA-Public Use
  Company Number: US-PFIZER INC-2015327558

PATIENT
  Age: 50 Year
  Sex: Male

DRUGS (2)
  1. LYRICA [Suspect]
     Active Substance: PREGABALIN
     Indication: FACET JOINT SYNDROME
     Dosage: 50 MG, 1X/DAY (HS)
     Route: 048
  2. LYRICA [Suspect]
     Active Substance: PREGABALIN
     Indication: PAIN

REACTIONS (3)
  - Swollen tongue [Unknown]
  - Dry mouth [Unknown]
  - Drug ineffective for unapproved indication [Unknown]
